FAERS Safety Report 16697409 (Version 1)
Quarter: 2019Q3

REPORT INFORMATION
  Report Type: Spontaneous
  Country: US (occurrence: US)
  Receive Date: 20190813
  Receipt Date: 20190813
  Transmission Date: 20191004
  Serious: Yes (Other)
  Sender: FDA-Public Use
  Company Number: US-FDC LIMITED-2019RIS00423

PATIENT
  Sex: Male

DRUGS (7)
  1. COMBIGAN [Suspect]
     Active Substance: BRIMONIDINE TARTRATE\TIMOLOL MALEATE
     Indication: GLAUCOMA
     Route: 047
  2. DORZOLAMIDE [Suspect]
     Active Substance: DORZOLAMIDE
     Indication: GLAUCOMA
     Dosage: 1 DROP IN EACH EYE FOR 1 DAY
     Route: 047
  3. LATANOPROST. [Suspect]
     Active Substance: LATANOPROST
     Indication: GLAUCOMA
     Dosage: 1 DROP, 1X/DAY AT BEDTIME TO EACH EYE
     Route: 047
     Dates: start: 2017
  4. LATANOPROST. [Suspect]
     Active Substance: LATANOPROST
     Dosage: 1 DROP ^MAYBE 3,4,5 TIMES A WEEK ON AND OFF^
     Route: 047
     Dates: end: 2019
  5. BRIMONIDINE [Suspect]
     Active Substance: BRIMONIDINE TARTRATE
     Indication: GLAUCOMA
     Dosage: UNK, 2X/DAY (7 AM AND 7 PM) TO EACH EYE
     Route: 047
  6. TIMOLOL MALEATE. [Suspect]
     Active Substance: TIMOLOL MALEATE
     Indication: GLAUCOMA
     Dosage: 1 DROP, 2X/DAY (7 AM AND 7 PM) TO EACH EYE
     Route: 047
  7. LATANOPROST. [Suspect]
     Active Substance: LATANOPROST
     Dosage: 1 DROP, 1X/DAY AT BEDTIME TO RIGHT EYE
     Route: 047
     Dates: start: 2019

REACTIONS (13)
  - Eyelid margin crusting [Recovered/Resolved]
  - Hypersensitivity [Recovered/Resolved]
  - Dry skin [Unknown]
  - Swelling face [Recovered/Resolved]
  - Treatment noncompliance [Unknown]
  - Skin exfoliation [Unknown]
  - Unevaluable event [Unknown]
  - Glaucoma [Not Recovered/Not Resolved]
  - Intraocular pressure increased [Not Recovered/Not Resolved]
  - Drug ineffective [Not Recovered/Not Resolved]
  - Eye irritation [Unknown]
  - Exposure via skin contact [Unknown]
  - Swelling of eyelid [Recovered/Resolved]
